FAERS Safety Report 4366263-6 (Version None)
Quarter: 2004Q2

REPORT INFORMATION
  Report Type: 
  Country: None (occurrence: None)
  Receive Date: 20040524
  Receipt Date: 20040517
  Transmission Date: 20050107
  Serious: Yes (Hospitalization)
  Sender: FDA-Public Use
  Company Number: 2003182770JP

PATIENT
  Age: 53 Year
  Sex: Male

DRUGS (20)
  1. CABERGOLINE [Suspect]
     Indication: PARKINSON'S DISEASE
     Dosage: SEE IMAGE
     Route: 048
     Dates: start: 20030910, end: 20030916
  2. CABERGOLINE [Suspect]
     Indication: PARKINSON'S DISEASE
     Dosage: SEE IMAGE
     Route: 048
     Dates: start: 20030917, end: 20030924
  3. CABERGOLINE [Suspect]
     Indication: PARKINSON'S DISEASE
     Dosage: SEE IMAGE
     Route: 048
     Dates: start: 20030925, end: 20031001
  4. CABERGOLINE [Suspect]
     Indication: PARKINSON'S DISEASE
     Dosage: SEE IMAGE
     Route: 048
     Dates: start: 20031002, end: 20031020
  5. CABERGOLINE [Suspect]
     Indication: PARKINSON'S DISEASE
     Dosage: SEE IMAGE
     Route: 048
     Dates: start: 20031025
  6. CYTOTEC [Concomitant]
  7. NEO DOPASTON [Concomitant]
  8. THEOLONG [Concomitant]
  9. NIPOLAZIN (MEQUITAZINE) [Concomitant]
  10. LOXONIN (LOXOPROFEN SODIUM) [Concomitant]
  11. SYMMETREL [Concomitant]
  12. ZOLPIDEM TARTRATE [Concomitant]
  13. TAKEPRON [Concomitant]
  14. PURSENNID (SENNA LEAF) [Concomitant]
  15. MAGNESIUM HYDROXIDE TAB [Concomitant]
  16. ALESION (EPINASTINE HYDROCHLORIDE) [Concomitant]
  17. ALINAMIN F (FURSULTIAMINE) [Concomitant]
  18. MOBIC [Concomitant]
  19. GASLON (IRSOGLADINE MALEATE) [Concomitant]
  20. ONE-ALPHA (ALFACALCIDOL) [Concomitant]

REACTIONS (5)
  - BLOOD CREATINE PHOSPHOKINASE INCREASED [None]
  - DRUG INEFFECTIVE [None]
  - HALLUCINATION [None]
  - NEUROLEPTIC MALIGNANT SYNDROME [None]
  - SUDDEN ONSET OF SLEEP [None]
